FAERS Safety Report 4707254-2 (Version None)
Quarter: 2005Q3

REPORT INFORMATION
  Report Type: 
  Country: None (occurrence: None)
  Receive Date: 20050701
  Receipt Date: 20050701
  Transmission Date: 20060218
  Serious: No
  Sender: FDA-Public Use
  Company Number: None

PATIENT
  Sex: Male
  Weight: 74.8435 kg

DRUGS (1)
  1. PREDNISONE [Suspect]
     Indication: DYSPNOEA
     Dosage: 10MG    TWICE DAILY   BUCCAL
     Route: 002
     Dates: start: 20041008, end: 20041108

REACTIONS (3)
  - ALOPECIA [None]
  - BLOOD PRESSURE INCREASED [None]
  - HEART RATE INCREASED [None]
